FAERS Safety Report 7779693-7 (Version None)
Quarter: 2011Q3

REPORT INFORMATION
  Report Type: 
  Country: None (occurrence: None)
  Receive Date: 20110927
  Receipt Date: 20110922
  Transmission Date: 20111222
  Serious: Yes (Other)
  Sender: FDA-Public Use
  Company Number: AU-PFIZER INC-2011224853

PATIENT
  Sex: Female

DRUGS (2)
  1. EFFEXOR XR [Suspect]
     Dosage: 450 MG, DAILY
     Dates: start: 20110101
  2. EFFEXOR XR [Suspect]
     Dosage: UNK
     Dates: start: 20100301

REACTIONS (2)
  - HAEMATOCHEZIA [None]
  - MEDICATION RESIDUE [None]
